FAERS Safety Report 23167067 (Version 1)
Quarter: 2023Q4

REPORT INFORMATION
  Report Type: Spontaneous
  Country: AU (occurrence: AU)
  Receive Date: 20231109
  Receipt Date: 20231109
  Transmission Date: 20240110
  Serious: Yes (Other)
  Sender: FDA-Public Use
  Company Number: AU-AMERICAN REGENT INC-2023002573

PATIENT
  Age: 40 Year
  Sex: Female

DRUGS (1)
  1. FERINJECT [Suspect]
     Active Substance: FERRIC CARBOXYMALTOSE
     Indication: Serum ferritin decreased
     Dosage: UNK, ON WEDNESDAY
     Dates: start: 20230920, end: 20230920

REACTIONS (9)
  - C-reactive protein increased [Recovered/Resolved]
  - Night sweats [Recovered/Resolved]
  - Influenza like illness [Recovered/Resolved]
  - Pelvic pain [Recovered/Resolved]
  - Blood phosphorus decreased [Recovered/Resolved]
  - Abdominal pain [Recovered/Resolved]
  - Bedridden [Recovered/Resolved]
  - Somnolence [Recovered/Resolved]
  - Diarrhoea [Unknown]

NARRATIVE: CASE EVENT DATE: 20230901
